FAERS Safety Report 25321254 (Version 4)
Quarter: 2025Q3

REPORT INFORMATION
  Report Type: Spontaneous
  Country: US (occurrence: US)
  Receive Date: 20250515
  Receipt Date: 20250812
  Transmission Date: 20251020
  Serious: No
  Sender: BIOGEN
  Company Number: US-BIOGEN-2025BI01310447

PATIENT
  Age: 64 Year
  Sex: Female

DRUGS (1)
  1. SPINRAZA [Suspect]
     Active Substance: NUSINERSEN
     Indication: Spinal muscular atrophy
     Route: 050
     Dates: start: 20200930

REACTIONS (8)
  - Scar [Unknown]
  - Procedural pain [Recovered/Resolved]
  - Arthropathy [Unknown]
  - Joint space narrowing [Unknown]
  - Fatigue [Unknown]
  - Post lumbar puncture syndrome [Recovered/Resolved]
  - Fall [Recovered/Resolved]
  - Vomiting [Unknown]

NARRATIVE: CASE EVENT DATE: 20250502
